FAERS Safety Report 18098688 (Version 1)
Quarter: 2020Q3

REPORT INFORMATION
  Report Type: Spontaneous
  Country: US (occurrence: US)
  Receive Date: 20200731
  Receipt Date: 20200731
  Transmission Date: 20201103
  Serious: No
  Sender: FDA-Public Use
  Company Number: US-SUNOVION-2020SUN002149

PATIENT
  Sex: Female

DRUGS (1)
  1. XOPENEX [Suspect]
     Active Substance: LEVALBUTEROL HYDROCHLORIDE
     Dosage: ACCORDING TO HOW SHE IS BREATHING (ON AND OFF)
     Route: 055

REACTIONS (4)
  - Abdominal pain upper [Unknown]
  - Blood pressure increased [Unknown]
  - Musculoskeletal chest pain [Unknown]
  - Treatment noncompliance [Unknown]
